FAERS Safety Report 7993422-3 (Version None)
Quarter: 2011Q4

REPORT INFORMATION
  Report Type: 
  Country: None (occurrence: None)
  Receive Date: 20111219
  Receipt Date: 20110921
  Transmission Date: 20120403
  Serious: Yes (Life-Threatening, Hospitalization)
  Sender: FDA-Public Use
  Company Number: US-ASTRAZENECA-2011SE47689

PATIENT
  Age: 77 Year
  Sex: Female
  Weight: 67.6 kg

DRUGS (8)
  1. CRESTOR [Suspect]
     Indication: HYPERLIPIDAEMIA
     Route: 048
     Dates: start: 20110407, end: 20110517
  2. METOPROLOL SUCCINATE [Concomitant]
  3. GLIMEPIRIDE [Concomitant]
  4. NORVASC [Concomitant]
     Route: 048
  5. ASPIRIN [Concomitant]
  6. CRESTOR [Suspect]
     Indication: CORONARY ARTERY DISEASE
     Route: 048
     Dates: start: 20110407, end: 20110517
  7. PLAVIX [Concomitant]
  8. AMLODIPINE [Concomitant]

REACTIONS (2)
  - RHABDOMYOLYSIS [None]
  - RENAL FAILURE CHRONIC [None]
